FAERS Safety Report 8291973-8 (Version None)
Quarter: 2012Q2

REPORT INFORMATION
  Report Type: 
  Country: None (occurrence: None)
  Receive Date: 20120417
  Receipt Date: 20120410
  Transmission Date: 20120825
  Serious: Yes (Hospitalization)
  Sender: FDA-Public Use
  Company Number: US-ELI_LILLY_AND_COMPANY-US201103007154

PATIENT
  Sex: Female

DRUGS (14)
  1. SYNTHROID [Concomitant]
  2. VITAMIN D [Concomitant]
     Dosage: 3000 UNK, UNK
  3. CALCIUM CARBONATE [Concomitant]
  4. FOSAMAX [Concomitant]
  5. TRAZODONE HCL [Concomitant]
  6. FORTEO [Suspect]
     Dosage: 20 UG, QD
     Route: 058
  7. FENTANYL [Concomitant]
  8. FORTEO [Suspect]
     Indication: OSTEOPOROSIS
     Dosage: 20 UG, QD
     Route: 058
  9. FORTEO [Suspect]
     Dosage: 20 UG, QD
     Route: 058
  10. VICODIN [Concomitant]
  11. TETRACYCLINE [Concomitant]
  12. TOPROL-XL [Concomitant]
     Indication: CARDIAC DISORDER
  13. PRILOSEC [Concomitant]
  14. PREDNISONE [Concomitant]

REACTIONS (5)
  - ARRHYTHMIA [None]
  - INJECTION SITE ERYTHEMA [None]
  - PAIN [None]
  - BACK PAIN [None]
  - PRURITUS [None]
